FAERS Safety Report 9563168 (Version 2)
Quarter: 2013Q3

REPORT INFORMATION
  Report Type: Spontaneous
  Country: US (occurrence: US)
  Receive Date: 20130927
  Receipt Date: 20130927
  Transmission Date: 20140515
  Serious: No
  Sender: FDA-Public Use
  Company Number: US-BRISTOL-MYERS SQUIBB COMPANY-18741546

PATIENT
  Age: 48 Year
  Sex: Male
  Weight: 107.93 kg

DRUGS (7)
  1. ONGLYZA TABS 5 MG [Suspect]
     Indication: TYPE 2 DIABETES MELLITUS
     Dosage: PRESCRIPTION#:6067121?LAST 30-COUNT REFILL:22MAR2013
     Dates: start: 201210
  2. METFORMIN HCL [Suspect]
  3. RANITIDINE [Concomitant]
  4. GLIPIZIDE [Concomitant]
     Dosage: 10MG ER EVERY EVENING
  5. NIACIN [Concomitant]
     Dosage: OTC
  6. LISINOPRIL [Concomitant]
  7. LIPITOR [Concomitant]

REACTIONS (1)
  - Blood glucose increased [Unknown]
